FAERS Safety Report 24526337 (Version 8)
Quarter: 2025Q1

REPORT INFORMATION
  Report Type: Report from Study
  Country: CA (occurrence: CA)
  Receive Date: 20241021
  Receipt Date: 20250130
  Transmission Date: 20250408
  Serious: Yes (Death, Hospitalization, Other)
  Sender: JOHNSON AND JOHNSON
  Company Number: CA-JNJFOC-20240821734

PATIENT
  Age: 67 Year
  Sex: Female

DRUGS (17)
  1. MACITENTAN [Suspect]
     Active Substance: MACITENTAN
     Indication: Pulmonary hypertension
     Route: 048
     Dates: start: 20231117
  2. MACITENTAN [Suspect]
     Active Substance: MACITENTAN
     Indication: Heart disease congenital
     Route: 048
     Dates: start: 20231214
  3. MACITENTAN [Suspect]
     Active Substance: MACITENTAN
     Indication: Connective tissue disorder
  4. SELEXIPAG [Suspect]
     Active Substance: SELEXIPAG
     Indication: Pulmonary hypertension
     Route: 048
     Dates: start: 20240726, end: 20241127
  5. SELEXIPAG [Suspect]
     Active Substance: SELEXIPAG
     Indication: Connective tissue disorder
     Route: 048
     Dates: start: 20240802
  6. SELEXIPAG [Suspect]
     Active Substance: SELEXIPAG
     Indication: Heart disease congenital
     Route: 048
     Dates: start: 20240726
  7. SELEXIPAG [Suspect]
     Active Substance: SELEXIPAG
     Route: 048
     Dates: start: 20240726
  8. SELEXIPAG [Suspect]
     Active Substance: SELEXIPAG
     Route: 048
     Dates: start: 20240726
  9. SELEXIPAG [Suspect]
     Active Substance: SELEXIPAG
     Route: 048
     Dates: start: 20241024
  10. SELEXIPAG [Suspect]
     Active Substance: SELEXIPAG
     Route: 048
     Dates: start: 20240724
  11. SELEXIPAG [Suspect]
     Active Substance: SELEXIPAG
     Route: 048
  12. SELEXIPAG [Suspect]
     Active Substance: SELEXIPAG
     Route: 048
     Dates: start: 20240726
  13. SELEXIPAG [Suspect]
     Active Substance: SELEXIPAG
     Route: 048
     Dates: start: 20240726
  14. ADCIRCA [Concomitant]
     Active Substance: TADALAFIL
  15. TYLENOL [Concomitant]
     Active Substance: ACETAMINOPHEN
  16. NAPROXEN [Concomitant]
     Active Substance: NAPROXEN
  17. TETRACYCLINE [Concomitant]
     Active Substance: TETRACYCLINE
     Indication: Gastrointestinal microorganism overgrowth

REACTIONS (17)
  - Myocardial infarction [Fatal]
  - Post procedural complication [Fatal]
  - Nausea [Not Recovered/Not Resolved]
  - Abdominal pain upper [Not Recovered/Not Resolved]
  - Intestinal obstruction [Not Recovered/Not Resolved]
  - Headache [Not Recovered/Not Resolved]
  - Chills [Not Recovered/Not Resolved]
  - Dizziness [Recovering/Resolving]
  - Feeling abnormal [Unknown]
  - Hyperhidrosis [Unknown]
  - Dizziness [Not Recovered/Not Resolved]
  - Pain in jaw [Recovering/Resolving]
  - Vomiting [Not Recovered/Not Resolved]
  - Abdominal distension [Recovering/Resolving]
  - Diarrhoea [Not Recovered/Not Resolved]
  - Dyspepsia [Unknown]
  - Asthenia [Unknown]

NARRATIVE: CASE EVENT DATE: 20240805
